FAERS Safety Report 17327867 (Version 12)
Quarter: 2023Q1

REPORT INFORMATION
  Report Type: Report from Study
  Country: CA (occurrence: CA)
  Receive Date: 20200127
  Receipt Date: 20230312
  Transmission Date: 20230417
  Serious: Yes (Other)
  Sender: FDA-Public Use
  Company Number: PHHY2019CA011353

PATIENT
  Age: 53 Year
  Sex: Female

DRUGS (11)
  1. COSENTYX [Suspect]
     Active Substance: SECUKINUMAB
     Indication: Psoriatic arthropathy
     Dosage: 300 MG, Q3W
     Route: 058
     Dates: start: 20190110
  2. COSENTYX [Suspect]
     Active Substance: SECUKINUMAB
     Dosage: 300 MG, QW
     Route: 058
     Dates: start: 20190117
  3. COSENTYX [Suspect]
     Active Substance: SECUKINUMAB
     Dosage: 300 MG, Q3W
     Route: 058
  4. COSENTYX [Suspect]
     Active Substance: SECUKINUMAB
     Dosage: UNK, UNKNOWN
     Route: 065
     Dates: start: 20221207
  5. PANTOPRAZOLE SODIUM [Concomitant]
     Active Substance: PANTOPRAZOLE SODIUM
     Indication: Product used for unknown indication
     Dosage: UNK
     Route: 065
  6. PLAQUENIL [Concomitant]
     Active Substance: HYDROXYCHLOROQUINE SULFATE
     Indication: Product used for unknown indication
     Dosage: UNK
     Route: 065
     Dates: start: 201809
  7. ESTRADIOL [Concomitant]
     Active Substance: ESTRADIOL
     Indication: Product used for unknown indication
     Dosage: UNK
     Route: 065
  8. PMS-HYDROCHLOROTHIAZID [Concomitant]
     Indication: Product used for unknown indication
     Dosage: UNK
     Route: 065
  9. ATIVAN [Concomitant]
     Active Substance: LORAZEPAM
     Indication: Product used for unknown indication
     Dosage: UNK
     Route: 065
  10. HYDROCODONE [Concomitant]
     Active Substance: HYDROCODONE
     Indication: Product used for unknown indication
     Dosage: UNK (PDP)
     Route: 065
  11. METHACIN [Concomitant]
     Indication: Product used for unknown indication
     Dosage: UNK (TEVA)
     Route: 065

REACTIONS (23)
  - Renal failure [Unknown]
  - Psoriatic arthropathy [Recovered/Resolved]
  - Mobility decreased [Recovered/Resolved]
  - Migraine [Unknown]
  - Rubber sensitivity [Unknown]
  - Pruritus [Unknown]
  - Dizziness [Unknown]
  - Fatigue [Recovering/Resolving]
  - Hot flush [Unknown]
  - Nausea [Recovering/Resolving]
  - Headache [Unknown]
  - Anaemia [Unknown]
  - Vulvovaginal discomfort [Unknown]
  - Erythema [Unknown]
  - Pain [Unknown]
  - Feeling abnormal [Unknown]
  - Influenza [Unknown]
  - Cough [Unknown]
  - Nasal congestion [Unknown]
  - Pulmonary pain [Not Recovered/Not Resolved]
  - Productive cough [Unknown]
  - Secretion discharge [Unknown]
  - Off label use [Unknown]

NARRATIVE: CASE EVENT DATE: 20190101
